FAERS Safety Report 13152647 (Version 2)
Quarter: 2017Q1

REPORT INFORMATION
  Report Type: Spontaneous
  Country: JP (occurrence: JP)
  Receive Date: 20170125
  Receipt Date: 20170209
  Transmission Date: 20170428
  Serious: Yes (Other)
  Sender: FDA-Public Use
  Company Number: JP-TAKEDA-2016TJP026159

PATIENT
  Age: 72 Year
  Sex: Female

DRUGS (3)
  1. NESINA [Suspect]
     Active Substance: ALOGLIPTIN BENZOATE
     Indication: BLOOD GLUCOSE ABNORMAL
     Dosage: 6.25 MG, UNK
     Route: 048
     Dates: start: 20161114, end: 20161122
  2. GLUCOBAY [Concomitant]
     Active Substance: ACARBOSE
     Dosage: 4 DF, UNK
     Route: 048
  3. GLUCOBAY [Concomitant]
     Active Substance: ACARBOSE
     Dosage: 2 DF, UNK
     Route: 048
     Dates: start: 20161114

REACTIONS (4)
  - Bile duct obstruction [Unknown]
  - Aspartate aminotransferase increased [Recovering/Resolving]
  - Alanine aminotransferase increased [Recovering/Resolving]
  - Gallbladder cancer [Unknown]

NARRATIVE: CASE EVENT DATE: 20161122
